FAERS Safety Report 22125137 (Version 1)
Quarter: 2023Q1

REPORT INFORMATION
  Report Type: Spontaneous
  Country: US (occurrence: US)
  Receive Date: 20230322
  Receipt Date: 20230322
  Transmission Date: 20230418
  Serious: No
  Sender: FDA-Public Use
  Company Number: US-SA-SAC20230320001435

PATIENT
  Sex: Male

DRUGS (1)
  1. DUPIXENT [Suspect]
     Active Substance: DUPILUMAB
     Dosage: 300MG , OTHER
     Route: 058

REACTIONS (5)
  - Pharyngitis streptococcal [Unknown]
  - Skin warm [Unknown]
  - Anger [Unknown]
  - Condition aggravated [Unknown]
  - Rash [Unknown]
